FAERS Safety Report 15978362 (Version 1)
Quarter: 2019Q1

REPORT INFORMATION
  Report Type: Report from Study
  Country: None (occurrence: US)
  Receive Date: 20190219
  Receipt Date: 20190219
  Transmission Date: 20190418
  Serious: Yes (Hospitalization, Other)
  Sender: FDA-Public Use
  Company Number: US-ABBVIE-17K-163-2119004-00

PATIENT
  Age: 25 Year
  Sex: Male
  Weight: 90.8 kg

DRUGS (3)
  1. OXYCODONE [Concomitant]
     Active Substance: OXYCODONE
     Indication: PAIN
  2. HUMIRA [Suspect]
     Active Substance: ADALIMUMAB
     Indication: COLITIS ULCERATIVE
     Route: 058
     Dates: start: 2017
  3. VITAMIN D2 [Concomitant]
     Active Substance: ERGOCALCIFEROL
     Indication: VITAMIN SUPPLEMENTATION

REACTIONS (18)
  - Hereditary haemorrhagic telangiectasia [Unknown]
  - Hemianaesthesia [Recovered/Resolved]
  - Drug ineffective [Not Recovered/Not Resolved]
  - Eye pain [Recovered/Resolved]
  - Epistaxis [Recovering/Resolving]
  - Pulmonary arteriovenous fistula [Recovered/Resolved]
  - Vision blurred [Recovered/Resolved]
  - Cerebrovascular accident [Recovered/Resolved]
  - Colitis ulcerative [Not Recovered/Not Resolved]
  - Speech disorder [Recovered/Resolved]
  - Hypoaesthesia [Recovered/Resolved]
  - Vomiting [Recovered/Resolved]
  - Depressed mood [Unknown]
  - Colitis ulcerative [Recovered/Resolved]
  - Headache [Recovered/Resolved]
  - Stress [Unknown]
  - Asthenia [Recovered/Resolved]
  - Drug level decreased [Unknown]

NARRATIVE: CASE EVENT DATE: 2018
